FAERS Safety Report 5683952-1 (Version None)
Quarter: 2008Q1

REPORT INFORMATION
  Report Type: 
  Country: None (occurrence: None)
  Receive Date: 20080328
  Receipt Date: 20080317
  Transmission Date: 20080703
  Serious: Yes (Hospitalization, Other)
  Sender: FDA-Public Use
  Company Number: PHHY2008JP03557

PATIENT
  Age: 42 Year
  Sex: Male

DRUGS (1)
  1. VOLTAREN [Suspect]
     Indication: TESTICULAR NEOPLASM
     Dosage: 50 MG/ DAY
     Route: 054
     Dates: start: 20080301, end: 20080301

REACTIONS (19)
  - ALANINE AMINOTRANSFERASE INCREASED [None]
  - ANTITHROMBIN III DECREASED [None]
  - ASPARTATE AMINOTRANSFERASE INCREASED [None]
  - BLOOD CREATINE PHOSPHOKINASE INCREASED [None]
  - BLOOD CREATININE INCREASED [None]
  - BLOOD LACTATE DEHYDROGENASE INCREASED [None]
  - BLOOD PRESSURE DECREASED [None]
  - BLOOD SODIUM DECREASED [None]
  - BLOOD UREA INCREASED [None]
  - C-REACTIVE PROTEIN INCREASED [None]
  - DISSEMINATED INTRAVASCULAR COAGULATION [None]
  - DRUG ERUPTION [None]
  - FIBRIN DEGRADATION PRODUCTS INCREASED [None]
  - HAEMATURIA [None]
  - HAEMODIALYSIS [None]
  - HEPAPLASTIN DECREASED [None]
  - HOT FLUSH [None]
  - PYREXIA [None]
  - RENAL FAILURE [None]
